FAERS Safety Report 8652625 (Version 2)
Quarter: 2012Q4

REPORT INFORMATION
  Report Type: 
  Country: US (occurrence: US)
  Receive Date: 20120706
  Receipt Date: 20121120
  Transmission Date: 20130627
  Serious: Yes (Other)
  Sender: FDA-Public Use
  Company Number: US-MILLENNIUM PHARMACEUTICALS, INC.-2012-04609

PATIENT
  Age: 76 Year
  Sex: Female
  Weight: 164.2 kg

DRUGS (1)
  1. VELCADE [Suspect]
     Indication: MULTIPLE MYELOMA
     Dosage: 2.28 mg, 1/week
     Route: 042
     Dates: start: 20110617, end: 20120224

REACTIONS (3)
  - Colon cancer metastatic [Unknown]
  - Second primary malignancy [Unknown]
  - Metastases to liver [Unknown]
